FAERS Safety Report 8958847 (Version 1)
Quarter: 2012Q4

REPORT INFORMATION
  Report Type: 
  Country: FR (occurrence: FR)
  Receive Date: 20121211
  Receipt Date: 20121211
  Transmission Date: 20130627
  Serious: Yes (Death, Life-Threatening)
  Sender: FDA-Public Use
  Company Number: FR-VERTEX PHARMACEUTICALS INC.-2012-025933

PATIENT
  Age: 69 Year
  Sex: Female
  Weight: 93 kg

DRUGS (6)
  1. INCIVO [Suspect]
     Indication: HEPATITIS C
     Dosage: Dosage Form: Tablet
     Route: 065
  2. INEXIUM [Concomitant]
     Dosage: 40 mg, qd
  3. PROPANOLOL HYDROCHLORIDE [Concomitant]
     Dosage: 40 mg, bid
  4. KENZEN [Concomitant]
     Dosage: 16 mg, qd
  5. CITALOPRAM [Concomitant]
     Dosage: 20 mg, qd
  6. BRISTOPEN [Concomitant]
     Dosage: 2 g, qid
     Dates: start: 20120625

REACTIONS (4)
  - Endocarditis [Fatal]
  - Brain abscess [Fatal]
  - Renal failure [Fatal]
  - Hepatic failure [Fatal]
